FAERS Safety Report 11111876 (Version 4)
Quarter: 2015Q3

REPORT INFORMATION
  Report Type: Report from Study
  Country: AU (occurrence: AU)
  Receive Date: 20150514
  Receipt Date: 20150922
  Transmission Date: 20151125
  Serious: Yes (Other)
  Sender: FDA-Public Use
  Company Number: AU-ABBVIE-15K-008-1389630-00

PATIENT
  Sex: Female

DRUGS (1)
  1. HUMIRA [Suspect]
     Active Substance: ADALIMUMAB
     Indication: PSORIATIC ARTHROPATHY
     Route: 065
     Dates: start: 20150225

REACTIONS (4)
  - Intervertebral disc protrusion [Not Recovered/Not Resolved]
  - Hemiparesis [Not Recovered/Not Resolved]
  - Post procedural infection [Recovering/Resolving]
  - Psoriatic arthropathy [Unknown]
